FAERS Safety Report 5673007-4 (Version None)
Quarter: 2008Q1

REPORT INFORMATION
  Report Type: 
  Country: None (occurrence: None)
  Receive Date: 20080319
  Receipt Date: 20080317
  Transmission Date: 20080703
  Serious: Yes (Life-Threatening, Hospitalization)
  Sender: FDA-Public Use
  Company Number: B0512647A

PATIENT
  Age: 10 Year
  Weight: 34 kg

DRUGS (7)
  1. LAMOTRIGINE [Suspect]
     Indication: EPILEPSY
     Dosage: 200MG PER DAY
     Route: 048
     Dates: start: 20080214, end: 20080228
  2. LAMOTRIGINE [Suspect]
     Route: 048
     Dates: start: 20080201
  3. LAMOTRIGINE [Suspect]
     Dosage: 50MG PER DAY
     Route: 048
  4. EPILIM [Concomitant]
     Indication: EPILEPSY
     Dosage: 600MG PER DAY
     Route: 048
     Dates: start: 20071127, end: 20080201
  5. FISH OIL [Concomitant]
     Indication: SUPPLEMENTATION THERAPY
     Route: 048
     Dates: start: 20080101
  6. PARACETAMOL [Concomitant]
     Indication: PAIN
     Route: 048
  7. IBUPROFEN [Concomitant]
     Indication: PAIN
     Route: 048

REACTIONS (7)
  - ASTHENIA [None]
  - DECREASED APPETITE [None]
  - MALAISE [None]
  - PRURITUS [None]
  - PYREXIA [None]
  - RASH GENERALISED [None]
  - VOMITING [None]
